FAERS Safety Report 4572554-6 (Version None)
Quarter: 2005Q1

REPORT INFORMATION
  Report Type: 
  Country: None (occurrence: None)
  Receive Date: 20050208
  Receipt Date: 20050127
  Transmission Date: 20050727
  Serious: Yes (Other)
  Sender: FDA-Public Use
  Company Number: US-JNJFOC-20050200107

PATIENT
  Sex: Female

DRUGS (18)
  1. INFLIXIMAB [Suspect]
     Indication: RHEUMATOID ARTHRITIS
     Route: 042
  2. ASACOL [Concomitant]
  3. CELEBREX [Concomitant]
  4. METHOTREXATE [Concomitant]
  5. PREMPRO [Concomitant]
  6. PREMPRO [Concomitant]
  7. TYLENOL [Concomitant]
  8. XALANTAN [Concomitant]
  9. NEXIUM [Concomitant]
  10. FOLIC ACID [Concomitant]
  11. MULTI-VITAMIN [Concomitant]
  12. MULTI-VITAMIN [Concomitant]
  13. MULTI-VITAMIN [Concomitant]
  14. MULTI-VITAMIN [Concomitant]
  15. MULTI-VITAMIN [Concomitant]
  16. MULTI-VITAMIN [Concomitant]
  17. MULTI-VITAMIN [Concomitant]
  18. MULTI-VITAMIN [Concomitant]

REACTIONS (1)
  - BASAL CELL CARCINOMA [None]
